FAERS Safety Report 5018196-X (Version None)
Quarter: 2006Q2

REPORT INFORMATION
  Report Type: 
  Country: None (occurrence: None)
  Receive Date: 20060530
  Receipt Date: 20060516
  Transmission Date: 20061013
  Serious: Yes (Hospitalization, Other)
  Sender: FDA-Public Use
  Company Number: 2005162266

PATIENT
  Sex: Female
  Weight: 103 kg

DRUGS (11)
  1. GEODON [Suspect]
     Indication: BIPOLAR DISORDER
     Dosage: 80 MG (80 MG, 2 IN 1 D), UNKNOWN
     Route: 065
     Dates: start: 20051001, end: 20050101
  2. GEODON [Suspect]
     Indication: SCHIZOPHRENIA
     Dosage: 80 MG (80 MG, 2 IN 1 D), UNKNOWN
     Route: 065
     Dates: start: 20051001, end: 20050101
  3. KEPPRA [Concomitant]
  4. ACETAMINOPHEN [Concomitant]
  5. ASPIRIN [Concomitant]
  6. CALCIUM CARBONATE (CALCIUM CARBONATE) [Concomitant]
  7. VITAMIN D [Concomitant]
  8. DONEPEZIL HCL [Concomitant]
  9. FAMOTIDINE [Concomitant]
  10. INSULIN [Concomitant]
  11. ENALAPRIL MALEATE [Concomitant]

REACTIONS (5)
  - ABNORMAL BEHAVIOUR [None]
  - GRAND MAL CONVULSION [None]
  - REFUSAL OF TREATMENT BY PATIENT [None]
  - SCREAMING [None]
  - URINARY INCONTINENCE [None]
